FAERS Safety Report 10441963 (Version 1)
Quarter: 2014Q3

REPORT INFORMATION
  Report Type: Spontaneous
  Country: US (occurrence: None)
  Receive Date: 20140731
  Receipt Date: 20140731
  Transmission Date: 20150326
  Serious: Yes (Other)
  Sender: FDA-Public Use
  Company Number: 1186033

PATIENT
  Age: 24 Year
  Sex: Female

DRUGS (7)
  1. LISINOPRIL(LISINOPRIL) [Concomitant]
     Active Substance: LISINOPRIL
  2. TORSEMIDE(TORASEMIDE) [Concomitant]
  3. PLAQUENIL(HYDROXYCHLOROQUINE SULFATE) [Concomitant]
  4. CARVEDILOL(CARVEDILOL) [Concomitant]
  5. CELLCEPT [Suspect]
     Active Substance: MYCOPHENOLATE MOFETIL\MYCOPHENOLATE MOFETIL HYDROCHLORIDE
     Indication: LUPUS NEPHRITIS
     Dosage: LAST DOSE TAKEN ON 19/JAN/2013 (500 MG,2 IN 1 D),ORAL
     Route: 048
     Dates: start: 20110721, end: 20130119
  6. GABACET(PIRACETAM) [Concomitant]
  7. ATORVASTATIN(ATORVASTATIN) [Concomitant]

REACTIONS (2)
  - Abortion spontaneous [None]
  - Exposure during pregnancy [None]

NARRATIVE: CASE EVENT DATE: 20130202
